FAERS Safety Report 8179092-2 (Version None)
Quarter: 2012Q1

REPORT INFORMATION
  Report Type: 
  Country: None (occurrence: None)
  Receive Date: 20120126
  Receipt Date: 20111202
  Transmission Date: 20120608
  Serious: No
  Sender: FDA-Public Use
  Company Number: PHEH2011US04893

PATIENT
  Age: 29 Year
  Sex: Male

DRUGS (7)
  1. TOPAMAX [Concomitant]
  2. SEROQUEL [Concomitant]
  3. LEVOTHYROXINE SODIUM [Concomitant]
  4. CALCIUM W/VITAMIN D NOS (CALCIUM, VITAMIN D NOS) [Concomitant]
  5. METFORMIN HCL [Concomitant]
  6. AFINITOR [Suspect]
     Indication: ASTROCYTOMA
     Dosage: 7.5 MG DAILY, ORAL : ORAL
     Route: 048
     Dates: start: 20100201, end: 20110127
  7. ZONISAMIDE [Concomitant]

REACTIONS (4)
  - DYSPNOEA [None]
  - BLOOD TRIGLYCERIDES INCREASED [None]
  - BODY TEMPERATURE INCREASED [None]
  - MALAISE [None]
